FAERS Safety Report 6218207-X (Version None)
Quarter: 2009Q2

REPORT INFORMATION
  Report Type: 
  Country: None (occurrence: None)
  Receive Date: 20090608
  Receipt Date: 20090602
  Transmission Date: 20091009
  Serious: No
  Sender: FDA-Public Use
  Company Number: US-B.I. PHARMACEUTICALS,INC./RIDGEFIELD-2009-BP-06713BP

PATIENT
  Age: 57 Year
  Sex: Male

DRUGS (2)
  1. FLOMAX [Suspect]
     Indication: BENIGN PROSTATIC HYPERPLASIA
     Dosage: .4MG
     Route: 048
     Dates: start: 20090531
  2. BENAZEPRIL HCTZ [Concomitant]
     Indication: HYPERTENSION

REACTIONS (3)
  - NASAL CONGESTION [None]
  - NASAL DISORDER [None]
  - NASAL DRYNESS [None]
